FAERS Safety Report 24446838 (Version 3)
Quarter: 2025Q2

REPORT INFORMATION
  Report Type: Report from Study
  Country: US (occurrence: US)
  Receive Date: 20241016
  Receipt Date: 20250417
  Transmission Date: 20250716
  Serious: Yes (Other)
  Sender: SUNOVION
  Company Number: US-SUMITOMO PHARMA SWITZERLAND GMBH-2024SPA003857

PATIENT

DRUGS (2)
  1. ORGOVYX [Suspect]
     Active Substance: RELUGOLIX
     Indication: Prostate cancer
     Dosage: 120 MG, QD
     Route: 048
     Dates: start: 20240414
  2. ZYTIGA [Suspect]
     Active Substance: ABIRATERONE ACETATE
     Route: 065

REACTIONS (5)
  - Rib fracture [Unknown]
  - Fall [Unknown]
  - Hypertension [Unknown]
  - Fatigue [Unknown]
  - Incorrect dose administered [Unknown]
